FAERS Safety Report 24998422 (Version 2)
Quarter: 2025Q1

REPORT INFORMATION
  Report Type: Spontaneous
  Country: US (occurrence: US)
  Receive Date: 20250222
  Receipt Date: 20250314
  Transmission Date: 20250409
  Serious: No
  Sender: SANOFI AVENTIS
  Company Number: US-SA-2025SA045939

PATIENT
  Age: 40 Year
  Sex: Male

DRUGS (4)
  1. DUPIXENT [Suspect]
     Active Substance: DUPILUMAB
     Dosage: 300 MG, QW
     Route: 058
     Dates: start: 20250117
  2. URSODIOL [Concomitant]
     Active Substance: URSODIOL
  3. SERTRALINE [Concomitant]
     Active Substance: SERTRALINE HYDROCHLORIDE
  4. CYCLOBENZAPRINE [Concomitant]
     Active Substance: CYCLOBENZAPRINE

REACTIONS (5)
  - Fatigue [Unknown]
  - Impaired quality of life [Unknown]
  - Eye irritation [Unknown]
  - Eyelid margin crusting [Unknown]
  - Vision blurred [Unknown]

NARRATIVE: CASE EVENT DATE: 20250101
